FAERS Safety Report 25967094 (Version 1)
Quarter: 2025Q4

REPORT INFORMATION
  Report Type: Spontaneous
  Country: JP (occurrence: None)
  Receive Date: 20251028
  Receipt Date: 20251028
  Transmission Date: 20260118
  Serious: Yes (Other)
  Sender: ACS DOBFAR
  Company Number: JP-ACS-20250568

PATIENT
  Age: 18 Month
  Sex: Female

DRUGS (2)
  1. AMPICILLIN TRIHYDRATE [Suspect]
     Active Substance: AMPICILLIN TRIHYDRATE
     Dosage: ()
  2. AMOXICILLIN [Suspect]
     Active Substance: AMOXICILLIN
     Dosage: IN TOTAL

REACTIONS (1)
  - Drug reaction with eosinophilia and systemic symptoms [Recovered/Resolved]
